FAERS Safety Report 8836594 (Version 2)
Quarter: 2012Q4

REPORT INFORMATION
  Report Type: Spontaneous
  Country: IN (occurrence: None)
  Receive Date: 20121009
  Receipt Date: 20121015
  Transmission Date: 20130627
  Serious: Yes (Hospitalization)
  Sender: FDA-Public Use
  Company Number: 7163559

PATIENT
  Age: 32 Year
  Sex: Female

DRUGS (1)
  1. LEVOTHYROXINE [Suspect]
     Indication: WEIGHT LOSS

REACTIONS (4)
  - Hypokalaemia [None]
  - Thyrotoxic periodic paralysis [None]
  - Drug abuse [None]
  - Off label use [None]
